FAERS Safety Report 7647201-7 (Version None)
Quarter: 2011Q3

REPORT INFORMATION
  Report Type: 
  Country: None (occurrence: None)
  Receive Date: 20110801
  Receipt Date: 20110719
  Transmission Date: 20111222
  Serious: Yes (Death, Hospitalization, Other)
  Sender: FDA-Public Use
  Company Number: CA-ELI_LILLY_AND_COMPANY-CA201107004941

PATIENT
  Sex: Female

DRUGS (20)
  1. NITRODERM [Concomitant]
  2. ZYPREXA [Suspect]
     Dosage: 7.5 DF, UNKNOWN
  3. CODEINE SULFATE [Concomitant]
  4. LISINOPRIL [Concomitant]
  5. PRILOSEC [Concomitant]
  6. ZYPREXA [Suspect]
     Dosage: 10 MG, EACH EVENING
  7. IMOVANE [Concomitant]
  8. PROZAC [Concomitant]
  9. TEMAZEPAM [Concomitant]
  10. ZYPREXA [Suspect]
     Indication: BIPOLAR DISORDER
     Dosage: 15 MG, EACH EVENING
     Dates: start: 19980730
  11. ZYPREXA [Suspect]
     Dosage: 5 MG, QD
  12. AMITRIPTYLINE [Concomitant]
  13. OXAZEPAM [Concomitant]
  14. FUROSEMIDE [Concomitant]
  15. CITALOPRAM HYDROBROMIDE [Concomitant]
  16. NORVASC [Concomitant]
  17. LIPITOR [Concomitant]
  18. CELEBREX [Concomitant]
  19. PHENERGAN HCL [Concomitant]
  20. ALTACE [Concomitant]

REACTIONS (11)
  - DEATH [None]
  - ANAEMIA [None]
  - HYPERTENSION [None]
  - FOLLICULITIS [None]
  - HYPOAESTHESIA [None]
  - MUSCULAR WEAKNESS [None]
  - CEREBROVASCULAR ACCIDENT [None]
  - TYPE 2 DIABETES MELLITUS [None]
  - IMPAIRED HEALING [None]
  - ASPARTATE AMINOTRANSFERASE INCREASED [None]
  - OSTEOARTHRITIS [None]
